FAERS Safety Report 5750247-7 (Version None)
Quarter: 2008Q2

REPORT INFORMATION
  Report Type: 
  Country: None (occurrence: None)
  Receive Date: 20080523
  Receipt Date: 20080523
  Transmission Date: 20081010
  Serious: No
  Sender: FDA-Public Use
  Company Number: None

PATIENT
  Age: 77 Year
  Sex: Female
  Weight: 63.5036 kg

DRUGS (1)
  1. DIGITEK [Suspect]
     Indication: ATRIAL FIBRILLATION
     Dosage: .125 2 ONCE DAILY ORAL
     Route: 048

REACTIONS (5)
  - INCORRECT DOSE ADMINISTERED [None]
  - MALAISE [None]
  - PHARMACEUTICAL PRODUCT COMPLAINT [None]
  - PHOTOPSIA [None]
  - VISUAL DISTURBANCE [None]
